FAERS Safety Report 7702166-4 (Version None)
Quarter: 2011Q3

REPORT INFORMATION
  Report Type: 
  Country: None (occurrence: None)
  Receive Date: 20110822
  Receipt Date: 20110809
  Transmission Date: 20111222
  Serious: Yes (Death, Hospitalization)
  Sender: FDA-Public Use
  Company Number: NL-MYLANLABS-2011S1016605

PATIENT
  Age: 65 Year
  Sex: Female

DRUGS (2)
  1. CLOZAPINE [Interacting]
     Dosage: 300 MG/DAY
     Route: 065
  2. AMITRIPTYLINE HCL [Suspect]
     Dosage: 250 MG/DAY
     Route: 065

REACTIONS (3)
  - DRUG INTERACTION [None]
  - INTERSTITIAL LUNG DISEASE [None]
  - DRUG LEVEL ABOVE THERAPEUTIC [None]
